FAERS Safety Report 24602797 (Version 1)
Quarter: 2024Q4

REPORT INFORMATION
  Report Type: Spontaneous
  Country: CN (occurrence: CN)
  Receive Date: 20241111
  Receipt Date: 20241111
  Transmission Date: 20250115
  Serious: Yes (Hospitalization, Other)
  Sender: ACCORD
  Company Number: None

PATIENT
  Age: 41 Year
  Sex: Female
  Weight: 50 kg

DRUGS (10)
  1. TRASTUZUMAB [Suspect]
     Active Substance: TRASTUZUMAB
     Indication: Invasive ductal breast carcinoma
     Dosage: STRENGTH: 150 MILLIGRAM?300 MILLIGRAM, QD
     Route: 042
     Dates: start: 20240911, end: 20240911
  2. DOCETAXEL [Suspect]
     Active Substance: DOCETAXEL
     Indication: Invasive ductal breast carcinoma
  3. CARBOPLATIN [Suspect]
     Active Substance: CARBOPLATIN
     Indication: HER2 protein overexpression
  4. PERTUZUMAB [Suspect]
     Active Substance: PERTUZUMAB
     Indication: Invasive ductal breast carcinoma
  5. DOCETAXEL [Suspect]
     Active Substance: DOCETAXEL
     Indication: Invasive ductal breast carcinoma
     Dosage: 115 MILLIGRAM, QD
     Route: 042
     Dates: start: 20240912, end: 20240912
  6. CARBOPLATIN [Suspect]
     Active Substance: CARBOPLATIN
     Indication: Invasive ductal breast carcinoma
     Dosage: 600 MILLIGRAM, QD; IV DRIP
     Dates: start: 20240912, end: 20240912
  7. CARBOPLATIN [Suspect]
     Active Substance: CARBOPLATIN
     Indication: Invasive ductal breast carcinoma
     Dosage: UNK
  8. TRASTUZUMAB [Suspect]
     Active Substance: TRASTUZUMAB
     Indication: HER2 protein overexpression
     Dosage: STRENGTH: 150 MILLIGRAM
     Route: 042
  9. PERTUZUMAB [Suspect]
     Active Substance: PERTUZUMAB
     Indication: HER2 protein overexpression
     Dates: start: 20240911, end: 20240911
  10. DOCETAXEL [Suspect]
     Active Substance: DOCETAXEL
     Indication: HER2 protein overexpression
     Dosage: UNK

REACTIONS (1)
  - Myelosuppression [Recovering/Resolving]
